FAERS Safety Report 21667697 (Version 1)
Quarter: 2022Q4

REPORT INFORMATION
  Report Type: Spontaneous
  Country: US (occurrence: US)
  Receive Date: 20221201
  Receipt Date: 20221201
  Transmission Date: 20230112
  Serious: Yes (Hospitalization)
  Sender: FDA-Public Use
  Company Number: US-MYLANLABS-202200862541

PATIENT
  Sex: Male
  Weight: 61.23 kg

DRUGS (2)
  1. LATANOPROST [Suspect]
     Active Substance: LATANOPROST
     Indication: Glaucoma
     Dosage: UNK
     Route: 065
  2. LATANOPROST [Suspect]
     Active Substance: LATANOPROST
     Dosage: 1 DROP, HS (1 DROP EACH AT NIGHT)
     Route: 065

REACTIONS (3)
  - Head injury [Unknown]
  - Neck injury [Unknown]
  - Product design issue [Unknown]
